FAERS Safety Report 8960647 (Version 1)
Quarter: 2012Q4

REPORT INFORMATION
  Report Type: Spontaneous
  Country: US (occurrence: None)
  Receive Date: 20121207
  Receipt Date: 20121207
  Transmission Date: 20130627
  Serious: Yes (Other)
  Sender: FDA-Public Use
  Company Number: None

PATIENT
  Age: 76 Year
  Sex: Male

DRUGS (1)
  1. COPAXONE [Suspect]
     Indication: MS
     Route: 058
     Dates: start: 20120201, end: 20121126

REACTIONS (3)
  - Tremor [None]
  - Palpitations [None]
  - Dizziness [None]
